FAERS Safety Report 16314763 (Version 2)
Quarter: 2019Q2

REPORT INFORMATION
  Report Type: Spontaneous
  Country: US (occurrence: US)
  Receive Date: 20190515
  Receipt Date: 20190604
  Transmission Date: 20190711
  Serious: Yes (Hospitalization, Other)
  Sender: FDA-Public Use
  Company Number: US-PFIZER INC-2019196463

PATIENT
  Age: 46 Year
  Sex: Female

DRUGS (3)
  1. PREMPRO [Suspect]
     Active Substance: ESTROGENS, CONJUGATED\MEDROXYPROGESTERONE ACETATE
     Indication: NIGHT SWEATS
  2. PREMPRO [Suspect]
     Active Substance: ESTROGENS, CONJUGATED\MEDROXYPROGESTERONE ACETATE
     Indication: MENOPAUSE
  3. PREMPRO [Suspect]
     Active Substance: ESTROGENS, CONJUGATED\MEDROXYPROGESTERONE ACETATE
     Indication: HOT FLUSH
     Dosage: 0.6 MG, 1X/DAY
     Dates: start: 2014, end: 2016

REACTIONS (3)
  - Ovarian cyst [Recovered/Resolved]
  - Breast cancer [Recovered/Resolved]
  - Pelvic neoplasm [Recovered/Resolved]

NARRATIVE: CASE EVENT DATE: 2014
